FAERS Safety Report 8871947 (Version 1)
Quarter: 2012Q4

REPORT INFORMATION
  Report Type: 
  Country: DE (occurrence: DE)
  Receive Date: 20121029
  Receipt Date: 20121029
  Transmission Date: 20130627
  Serious: Yes (Other)
  Sender: FDA-Public Use
  Company Number: PHHY2012DE096908

PATIENT

DRUGS (3)
  1. CICLOSPORIN [Suspect]
  2. POSACONAZOLE [Interacting]
     Indication: ANTIFUNGAL PROPHYLAXIS
  3. METHOTREXATE [Concomitant]

REACTIONS (2)
  - Drug interaction [Unknown]
  - Immunosuppressant drug level increased [Unknown]
